FAERS Safety Report 5976930-6 (Version None)
Quarter: 2008Q4

REPORT INFORMATION
  Report Type: 
  Country: None (occurrence: None)
  Receive Date: 20081203
  Receipt Date: 20081120
  Transmission Date: 20090506
  Serious: Yes (Disabling, Other)
  Sender: FDA-Public Use
  Company Number: US-BAYER-200839360NA

PATIENT
  Sex: Male

DRUGS (1)
  1. TRASYLOL [Suspect]
     Indication: CORONARY ARTERY BYPASS
     Route: 042
     Dates: start: 20060425

REACTIONS (9)
  - ANHEDONIA [None]
  - DEPRESSION [None]
  - EMOTIONAL DISTRESS [None]
  - FEAR OF DEATH [None]
  - INJURY [None]
  - NERVOUSNESS [None]
  - PAIN [None]
  - RENAL FAILURE ACUTE [None]
  - UNEVALUABLE EVENT [None]
